FAERS Safety Report 8786522 (Version 2)
Quarter: 2012Q4

REPORT INFORMATION
  Report Type: 
  Country: US (occurrence: US)
  Receive Date: 20120914
  Receipt Date: 20121228
  Transmission Date: 20130627
  Serious: No
  Sender: FDA-Public Use
  Company Number: US-009507513-1209USA000289

PATIENT
  Sex: Male

DRUGS (5)
  1. PEGINTRON [Suspect]
     Dosage: Mix as directed, dial to 0.5 ml and inject subq weekly as directed by your physician
     Route: 058
  2. VICTRELIS [Suspect]
  3. RIBAPAK [Suspect]
     Dosage: 1200/day
  4. BENADRYL [Concomitant]
     Dosage: 25 mg, UNK
  5. TYLENOL [Concomitant]
     Dosage: 500 mg, UNK

REACTIONS (4)
  - Drug ineffective [Unknown]
  - Furuncle [Unknown]
  - Platelet count decreased [Unknown]
  - Productive cough [Unknown]
